FAERS Safety Report 23024214 (Version 1)
Quarter: 2023Q4

REPORT INFORMATION
  Report Type: Spontaneous
  Country: FR (occurrence: FR)
  Receive Date: 20231004
  Receipt Date: 20231004
  Transmission Date: 20240109
  Serious: Yes (Life-Threatening, Other)
  Sender: FDA-Public Use
  Company Number: FR-AFSSAPS-PV2023000903

PATIENT
  Age: 34 Year
  Sex: Female

DRUGS (5)
  1. REPAGLINIDE [Suspect]
     Active Substance: REPAGLINIDE
     Indication: Product used for unknown indication
     Dosage: 18 MILLIGRAM (1 TOTAL) (9 CP DE 2 MG)
     Route: 048
     Dates: start: 20230911, end: 20230911
  2. LOXAPINE [Suspect]
     Active Substance: LOXAPINE
     Indication: Product used for unknown indication
     Dosage: 250 MILLIGRAM (1 TOTAL) (5 CP DE 50 MG)
     Route: 048
     Dates: start: 20230911, end: 20230911
  3. MIDAZOLAM [Suspect]
     Active Substance: MIDAZOLAM
     Indication: Product used for unknown indication
     Dosage: 50 MILLIGRAM (1 TOTAL)
     Route: 048
     Dates: start: 20230911, end: 20230911
  4. NEFOPAM [Suspect]
     Active Substance: NEFOPAM
     Indication: Product used for unknown indication
     Dosage: 20 MILLIGRAM (1 TOTAL)
     Route: 048
     Dates: start: 20230911, end: 20230911
  5. RIVOTRIL [Suspect]
     Active Substance: CLONAZEPAM
     Indication: Intentional overdose
     Dosage: 2 MILLIGRAM (1 TOTAL) (FOUR-DIMENSIONAL TABLET)
     Route: 048
     Dates: start: 20230911, end: 20230911

REACTIONS (2)
  - Depressed level of consciousness [Recovering/Resolving]
  - Hypoglycaemia [Recovered/Resolved]

NARRATIVE: CASE EVENT DATE: 20230911
